FAERS Safety Report 11475021 (Version 1)
Quarter: 2015Q3

REPORT INFORMATION
  Report Type: Spontaneous
  Country: US (occurrence: None)
  Receive Date: 20150908
  Receipt Date: 20150908
  Transmission Date: 20151125
  Serious: Yes (Other)
  Sender: FDA-Public Use
  Company Number: None

PATIENT
  Age: 69 Year
  Sex: Male

DRUGS (3)
  1. REFRESH P.M. [Suspect]
     Active Substance: MINERAL OIL\PETROLATUM
     Indication: DRY EYE
     Dates: start: 20150803, end: 20150903
  2. FISH OIL [Concomitant]
     Active Substance: FISH OIL
  3. FINESTERIDE [Concomitant]
     Active Substance: FINASTERIDE

REACTIONS (3)
  - Eye disorder [None]
  - Vision blurred [None]
  - Product quality issue [None]

NARRATIVE: CASE EVENT DATE: 20150903
